FAERS Safety Report 7336763-5 (Version None)
Quarter: 2011Q1

REPORT INFORMATION
  Report Type: 
  Country: None (occurrence: None)
  Receive Date: 20110308
  Receipt Date: 20110301
  Transmission Date: 20110831
  Serious: No
  Sender: FDA-Public Use
  Company Number: US-BIOGENIDEC-2011BI006934

PATIENT
  Age: 65 Year
  Sex: Male

DRUGS (3)
  1. TYSABRI [Suspect]
     Route: 042
  2. TYSABRI [Suspect]
     Route: 042
     Dates: start: 20050204
  3. TYSABRI [Suspect]
     Indication: MULTIPLE SCLEROSIS
     Route: 042
     Dates: start: 20070216, end: 20110214

REACTIONS (2)
  - DECREASED APPETITE [None]
  - DEPRESSION [None]
